FAERS Safety Report 22181196 (Version 1)
Quarter: 2023Q2

REPORT INFORMATION
  Report Type: Spontaneous
  Country: IT (occurrence: IT)
  Receive Date: 20230406
  Receipt Date: 20230406
  Transmission Date: 20230721
  Serious: Yes (Hospitalization)
  Sender: FDA-Public Use
  Company Number: IT-STADA-272700

PATIENT
  Age: 11 Year
  Sex: Male

DRUGS (12)
  1. METHOTREXATE SODIUM [Suspect]
     Active Substance: METHOTREXATE SODIUM
     Indication: Precursor T-lymphoblastic lymphoma/leukaemia stage III
     Route: 037
     Dates: start: 202010
  2. DAUNORUBICIN HYDROCHLORIDE [Suspect]
     Active Substance: DAUNORUBICIN HYDROCHLORIDE
     Indication: Precursor T-lymphoblastic lymphoma/leukaemia stage III
     Dosage: 30 MG/M2, 1X/DAY FOR 1H DAILY
     Route: 042
     Dates: start: 202010
  3. CYTARABINE [Suspect]
     Active Substance: CYTARABINE
     Indication: Precursor T-lymphoblastic lymphoma/leukaemia stage III
     Dosage: 75 MG/M2, 1X/DAY
     Route: 042
     Dates: start: 202010
  4. VINCRISTINE SULFATE [Suspect]
     Active Substance: VINCRISTINE SULFATE
     Indication: Precursor T-lymphoblastic lymphoma/leukaemia stage III
     Dosage: 1.5 MG/M2, 1X/DAY
     Route: 042
     Dates: start: 2020
  5. VINCRISTINE SULFATE [Suspect]
     Active Substance: VINCRISTINE SULFATE
     Indication: Precursor T-lymphoblastic lymphoma/leukaemia stage III
     Dosage: 2 MG/M2, 1X/DAY
     Route: 042
     Dates: start: 2020
  6. PREDNISONE [Suspect]
     Active Substance: PREDNISONE
     Indication: Precursor T-lymphoblastic lymphoma/leukaemia stage III
     Dosage: 60 MG/M2, 1X/DAY
     Route: 042
     Dates: start: 2020
  7. CYCLOPHOSPHAMIDE [Suspect]
     Active Substance: CYCLOPHOSPHAMIDE
     Indication: Precursor T-lymphoblastic lymphoma/leukaemia stage III
     Dosage: 1000 MG/M2, 1X/DAY FOR 1H DAILY
     Route: 042
     Dates: start: 202010
  8. PREDNISONE [Suspect]
     Active Substance: PREDNISONE
     Indication: Precursor T-lymphoblastic lymphoma/leukaemia stage III
     Dosage: 60 MG/M2, 1X/DAY
     Route: 048
     Dates: start: 2020
  9. MERCAPTOPURINE [Suspect]
     Active Substance: MERCAPTOPURINE
     Indication: Precursor T-lymphoblastic lymphoma/leukaemia stage III
     Dosage: 60 MG/M2, 1X/DAY
     Route: 048
     Dates: start: 202010
  10. SULFAMETHOXAZOLE\TRIMETHOPRIM [Concomitant]
     Active Substance: SULFAMETHOXAZOLE\TRIMETHOPRIM
     Indication: Antibiotic prophylaxis
     Route: 065
     Dates: start: 2020
  11. PEGASPARGASE [Concomitant]
     Active Substance: PEGASPARGASE
     Indication: Precursor T-lymphoblastic lymphoma/leukaemia stage III
     Dosage: 2500 U/M2 FOR 1H DAILY
     Route: 042
     Dates: start: 202010
  12. ACYCLOVIR [Concomitant]
     Active Substance: ACYCLOVIR
     Indication: Antibiotic prophylaxis
     Route: 065
     Dates: start: 2020

REACTIONS (1)
  - COVID-19 [Unknown]

NARRATIVE: CASE EVENT DATE: 20200101
